FAERS Safety Report 7557220-7 (Version None)
Quarter: 2011Q2

REPORT INFORMATION
  Report Type: 
  Country: None (occurrence: None)
  Receive Date: 20110620
  Receipt Date: 20110113
  Transmission Date: 20111010
  Serious: No
  Sender: FDA-Public Use
  Company Number: US-MYLANLABS-2011S1000967

PATIENT
  Sex: Male
  Weight: 72.58 kg

DRUGS (6)
  1. PERFOROMIST [Suspect]
     Indication: CHRONIC OBSTRUCTIVE PULMONARY DISEASE
     Route: 055
     Dates: start: 20090101
  2. TEKTURNA [Concomitant]
  3. PERFOROMIST [Suspect]
     Indication: ASTHMA
     Route: 055
     Dates: start: 20090101
  4. ATACAND [Concomitant]
     Dosage: BEGAN YEARS AGO
  5. ALBUTEROL SULFATE AUTOHALER [Concomitant]
     Dates: end: 20090101
  6. COREG [Concomitant]
     Dosage: BEGAN YEARS AGO

REACTIONS (1)
  - CHEST PAIN [None]
